FAERS Safety Report 6959312-X (Version None)
Quarter: 2010Q3

REPORT INFORMATION
  Report Type: 
  Country: None (occurrence: None)
  Receive Date: 20100831
  Receipt Date: 20100819
  Transmission Date: 20110219
  Serious: No
  Sender: FDA-Public Use
  Company Number: US-PFIZER INC-2010098461

PATIENT
  Sex: Female

DRUGS (2)
  1. SUTENT [Suspect]
     Indication: METASTATIC RENAL CELL CARCINOMA
     Dosage: 25 MG, 1X/DAY X 28 DAYS REPEAT EVERY 6 WEEKS
     Dates: start: 20100204, end: 20100511
  2. EVEROLIMUS [Concomitant]
     Dosage: UNK
     Dates: start: 20100511

REACTIONS (2)
  - DISEASE PROGRESSION [None]
  - METASTATIC RENAL CELL CARCINOMA [None]
